FAERS Safety Report 4679571-6 (Version None)
Quarter: 2005Q2

REPORT INFORMATION
  Report Type: 
  Country: None (occurrence: None)
  Receive Date: 20050531
  Receipt Date: 20050524
  Transmission Date: 20051028
  Serious: Yes (Life-Threatening, Hospitalization)
  Sender: FDA-Public Use
  Company Number: 142176USA

PATIENT
  Age: 36 Year
  Sex: Male

DRUGS (2)
  1. PIMOZIDE [Suspect]
     Indication: TOURETTE'S DISORDER
     Dosage: 10 MILLIGRAM, ORAL
     Route: 048
  2. CLARITHROMYCIN [Suspect]

REACTIONS (4)
  - CARDIAC ARREST [None]
  - DRUG INTERACTION [None]
  - ELECTROCARDIOGRAM QT PROLONGED [None]
  - TORSADE DE POINTES [None]
